FAERS Safety Report 25390137 (Version 1)
Quarter: 2025Q2

REPORT INFORMATION
  Report Type: Other
  Country: FI (occurrence: FI)
  Receive Date: 20250603
  Receipt Date: 20250603
  Transmission Date: 20250717
  Serious: Yes (Other)
  Sender: WES PHARMA INC
  Company Number: FI-WES Pharma Inc-2177967

PATIENT
  Age: 26 Year
  Sex: Female

DRUGS (1)
  1. METHYLPHENIDATE HYDROCHLORIDE [Suspect]
     Active Substance: METHYLPHENIDATE HYDROCHLORIDE
     Indication: Attention deficit hyperactivity disorder

REACTIONS (9)
  - Histiocytosis [Recovering/Resolving]
  - Product deposit [Unknown]
  - Incorrect route of product administration [Unknown]
  - Anaemia [Recovering/Resolving]
  - Eyelid oedema [Recovering/Resolving]
  - Lip oedema [Recovering/Resolving]
  - Face oedema [Recovering/Resolving]
  - Swelling of eyelid [Recovering/Resolving]
  - Retinopathy [Recovering/Resolving]
